FAERS Safety Report 15418229 (Version 1)
Quarter: 2018Q3

REPORT INFORMATION
  Report Type: Spontaneous
  Country: FR (occurrence: FR)
  Receive Date: 20180924
  Receipt Date: 20180924
  Transmission Date: 20181010
  Serious: Yes (Other)
  Sender: FDA-Public Use
  Company Number: FR-BAYER-2018-172885

PATIENT
  Age: 56 Year
  Sex: Female

DRUGS (2)
  1. STIVARGA [Suspect]
     Active Substance: REGORAFENIB
     Indication: COLORECTAL CANCER METASTATIC
     Dosage: 160 MG, UNK
     Dates: start: 201706, end: 2017
  2. STIVARGA [Suspect]
     Active Substance: REGORAFENIB
     Indication: COLORECTAL CANCER METASTATIC
     Dosage: 120 MG, QD
     Dates: start: 2017, end: 201803

REACTIONS (10)
  - Weight decreased [None]
  - Diarrhoea [None]
  - Nausea [None]
  - Anaemia [None]
  - Colorectal cancer metastatic [None]
  - Fatigue [None]
  - Decreased appetite [None]
  - Diarrhoea [None]
  - Urticaria [Recovered/Resolved]
  - Pain [None]

NARRATIVE: CASE EVENT DATE: 2017
